FAERS Safety Report 5213888-1 (Version None)
Quarter: 2007Q1

REPORT INFORMATION
  Report Type: 
  Country: None (occurrence: None)
  Receive Date: 20070117
  Receipt Date: 20061111
  Transmission Date: 20070707
  Serious: Yes (Death)
  Sender: FDA-Public Use
  Company Number: 3761

PATIENT
  Age: 61 Year
  Sex: Female

DRUGS (1)
  1. ATENOLOL [Suspect]
     Dosage: TABLETS, PO
     Route: 048

REACTIONS (1)
  - DEATH [None]
